FAERS Safety Report 7437640-1 (Version None)
Quarter: 2011Q2

REPORT INFORMATION
  Report Type: 
  Country: None (occurrence: None)
  Receive Date: 20110426
  Receipt Date: 20110420
  Transmission Date: 20111010
  Serious: No
  Sender: FDA-Public Use
  Company Number: US-PFIZER INC-2011087048

PATIENT
  Sex: Female
  Weight: 172 kg

DRUGS (2)
  1. TOVIAZ [Suspect]
     Indication: NOCTURIA
     Dosage: 4 MG, 1X/DAY
     Route: 048
     Dates: start: 20101001
  2. LASIX [Suspect]
     Dosage: 150 MG, 2X/DAY
     Route: 048

REACTIONS (2)
  - DRUG INEFFECTIVE [None]
  - INSOMNIA [None]
